FAERS Safety Report 9138947 (Version 1)
Quarter: 2013Q1

REPORT INFORMATION
  Report Type: Spontaneous
  Country: FR (occurrence: FR)
  Receive Date: 20130305
  Receipt Date: 20130305
  Transmission Date: 20140127
  Serious: Yes (Hospitalization, Other)
  Sender: FDA-Public Use
  Company Number: FR-ELI_LILLY_AND_COMPANY-FR201302007960

PATIENT
  Age: 52 Year
  Sex: Female

DRUGS (5)
  1. PROZAC [Suspect]
     Dosage: 20 MG, UNKNOWN
     Route: 048
  2. ARAVA [Concomitant]
     Indication: PSORIATIC ARTHROPATHY
     Dosage: 20 MG, QD
     Dates: start: 20121106, end: 20121206
  3. CORTANCYL [Concomitant]
     Dosage: 1 MG, TID
     Dates: start: 201205
  4. PANTOPRAZOL [Concomitant]
     Dosage: 10 MG, UNKNOWN
  5. SERESTA [Concomitant]
     Dosage: 60 MG, QD
     Dates: start: 20121119

REACTIONS (4)
  - Purpura [Not Recovered/Not Resolved]
  - Sensorimotor disorder [Not Recovered/Not Resolved]
  - Rash [Not Recovered/Not Resolved]
  - Arthralgia [Unknown]
